FAERS Safety Report 6941262-6 (Version None)
Quarter: 2010Q3

REPORT INFORMATION
  Report Type: 
  Country: None (occurrence: None)
  Receive Date: 20100825
  Receipt Date: 20100727
  Transmission Date: 20110219
  Serious: No
  Sender: FDA-Public Use
  Company Number: US-BRISTOL-MYERS SQUIBB COMPANY-15212871

PATIENT
  Age: 50 Year
  Sex: Male

DRUGS (3)
  1. ONGLYZA [Suspect]
     Indication: DIABETES MELLITUS
     Dates: start: 20100101, end: 20100721
  2. CRESTOR [Concomitant]
  3. METFORMIN HCL [Concomitant]

REACTIONS (2)
  - BLISTER [None]
  - OEDEMA PERIPHERAL [None]
